FAERS Safety Report 26102664 (Version 1)
Quarter: 2025Q4

REPORT INFORMATION
  Report Type: Spontaneous
  Country: US (occurrence: US)
  Receive Date: 20251128
  Receipt Date: 20251128
  Transmission Date: 20260117
  Serious: No
  Sender: Ocuvex Therapeutics
  Company Number: US-Ocuvex Therapeutics, Inc.-OCVX20250026

PATIENT

DRUGS (3)
  1. OMLONTI [Suspect]
     Active Substance: OMIDENEPAG ISOPROPYL
     Indication: Glaucoma drainage device placement
     Dosage: ONE DROP
     Dates: start: 20251022, end: 202510
  2. COMBIGAN [Concomitant]
     Active Substance: BRIMONIDINE TARTRATE\TIMOLOL MALEATE
     Indication: Product used for unknown indication
     Dosage: UNKNOWN
     Route: 065
  3. ROCKLATAN [Concomitant]
     Active Substance: LATANOPROST\NETARSUDIL MESYLATE
     Indication: Product used for unknown indication
     Dosage: UNKNOWN, EVENINGS
     Route: 065

REACTIONS (2)
  - Eye swelling [Unknown]
  - Vision blurred [Unknown]

NARRATIVE: CASE EVENT DATE: 20251023
